FAERS Safety Report 9795592 (Version 1)
Quarter: 2014Q1

REPORT INFORMATION
  Report Type: Spontaneous
  Country: FR (occurrence: FR)
  Receive Date: 20140103
  Receipt Date: 20140103
  Transmission Date: 20141002
  Serious: Yes (Death, Hospitalization)
  Sender: FDA-Public Use
  Company Number: FR-BRISTOL-MYERS SQUIBB COMPANY-19936301

PATIENT
  Age: 73 Year
  Sex: Female

DRUGS (8)
  1. ONGLYZA TABS 5 MG [Suspect]
     Indication: TYPE 2 DIABETES MELLITUS
     Route: 048
     Dates: start: 20120716, end: 20131022
  2. PERINDOPRIL ARGININE [Suspect]
     Dosage: 1DF-10MG/5MG
     Route: 048
     Dates: start: 20100302, end: 20131022
  3. HALDOL [Concomitant]
  4. CLOPIXOL [Concomitant]
     Route: 048
  5. ARTANE [Concomitant]
  6. SPIRIVA [Concomitant]
  7. FORLAX [Concomitant]
  8. DOLIPRANE [Concomitant]

REACTIONS (11)
  - Angioedema [Fatal]
  - Escherichia urinary tract infection [None]
  - Lung infection [None]
  - Pleural effusion [None]
  - Ascites [None]
  - Nosocomial infection [None]
  - Encephalopathy [None]
  - Proteus infection [None]
  - Sinusitis [None]
  - Acute respiratory distress syndrome [None]
  - Sleep apnoea syndrome [None]
